FAERS Safety Report 8372888-3 (Version None)
Quarter: 2012Q2

REPORT INFORMATION
  Report Type: 
  Country: None (occurrence: None)
  Receive Date: 20120521
  Receipt Date: 20120516
  Transmission Date: 20120825
  Serious: Yes (Hospitalization)
  Sender: FDA-Public Use
  Company Number: US-PFIZER INC-2012117036

PATIENT
  Age: 26 Year
  Sex: Male

DRUGS (11)
  1. INSULIN [Concomitant]
     Indication: DIABETES MELLITUS
     Dosage: UNK
  2. PROMETHAZINE [Concomitant]
     Indication: VOMITING
     Dosage: 25 MG, EVERY 4 HRS
  3. PROTONIX [Suspect]
     Indication: OFF LABEL USE
  4. ZITHROMAX [Suspect]
     Indication: MYCOBACTERIAL INFECTION
     Dosage: 250 MG, DAILY
     Route: 042
  5. PRIMAXIN [Concomitant]
     Dosage: 500 MG, 3X/DAY
  6. BENADRYL [Concomitant]
     Indication: VOMITING
     Dosage: 50 MG, EVERY 4 HRS
  7. BENADRYL [Concomitant]
     Indication: NAUSEA
  8. CEFOXITIN [Suspect]
     Indication: MYCOBACTERIAL INFECTION
     Dosage: 2 G, 3X/DAY
     Route: 042
  9. AMIKACIN [Suspect]
     Indication: MYCOBACTERIAL INFECTION
     Dosage: 750 MG, 1X/DAY
     Route: 042
  10. PROTONIX [Suspect]
     Indication: BLOOD DISORDER
     Dosage: 40 MG, 2X/DAY
     Route: 042
     Dates: start: 20061201
  11. PROMETHAZINE [Concomitant]
     Indication: NAUSEA

REACTIONS (3)
  - DEHYDRATION [None]
  - RENAL FAILURE [None]
  - RECTAL HAEMORRHAGE [None]
